FAERS Safety Report 20809190 (Version 1)
Quarter: 2022Q2

REPORT INFORMATION
  Report Type: Spontaneous
  Country: US (occurrence: US)
  Receive Date: 20220510
  Receipt Date: 20220510
  Transmission Date: 20220721
  Serious: Yes (Other)
  Sender: FDA-Public Use
  Company Number: US-VYERA PHARMACEUTICALS, LLC-2022VYE00013

PATIENT
  Sex: Male
  Weight: 72.562 kg

DRUGS (6)
  1. DARAPRIM [Suspect]
     Active Substance: PYRIMETHAMINE
     Indication: Toxoplasmosis
     Dosage: 75 MG, 1X/DAY
     Dates: start: 20211018, end: 202204
  2. DARAPRIM [Suspect]
     Active Substance: PYRIMETHAMINE
     Indication: HIV infection
  3. LEUCOVORIN [Concomitant]
     Active Substance: LEUCOVORIN
  4. SULFADIAZINE [Concomitant]
     Active Substance: SULFADIAZINE
     Dosage: 500 MG, 1X/DAY
     Route: 048
  5. DEXAMETHASONE [Concomitant]
     Active Substance: DEXAMETHASONE
     Dosage: 4 MG, 1X/DAY
     Route: 048
  6. VALCYTE [Concomitant]
     Active Substance: VALGANCICLOVIR HYDROCHLORIDE
     Dosage: 450 MG, 1X/DAY
     Route: 048

REACTIONS (4)
  - Myelosuppression [Not Recovered/Not Resolved]
  - Pain [Not Recovered/Not Resolved]
  - Myalgia [Not Recovered/Not Resolved]
  - Fatigue [Not Recovered/Not Resolved]
